FAERS Safety Report 5223731-2 (Version None)
Quarter: 2007Q1

REPORT INFORMATION
  Report Type: 
  Country: None (occurrence: None)
  Receive Date: 20070130
  Receipt Date: 20070118
  Transmission Date: 20070707
  Serious: Yes (Hospitalization)
  Sender: FDA-Public Use
  Company Number: JP-PFIZER INC-2006057719

PATIENT
  Sex: Male

DRUGS (2)
  1. AZULFIDINE EN-TABS [Suspect]
     Indication: RHEUMATOID ARTHRITIS
     Route: 048
     Dates: start: 20051108, end: 20051213
  2. PREDONINE [Concomitant]
     Route: 048

REACTIONS (5)
  - ERYTHEMA [None]
  - HUMAN HERPESVIRUS 6 INFECTION [None]
  - LIVER DISORDER [None]
  - PYREXIA [None]
  - RASH [None]
